FAERS Safety Report 5643424-7 (Version None)
Quarter: 2008Q1

REPORT INFORMATION
  Report Type: 
  Country: None (occurrence: None)
  Receive Date: 20080226
  Receipt Date: 20080212
  Transmission Date: 20080703
  Serious: Yes (Hospitalization)
  Sender: FDA-Public Use
  Company Number: 100#08#2008-00776

PATIENT
  Age: 74 Year
  Sex: Female

DRUGS (2)
  1. METFORMIN HCL [Suspect]
     Indication: DIABETES MELLITUS
     Dosage: 850 MG EVERY 8 HOURS
  2. GLYBURIDE [Concomitant]

REACTIONS (10)
  - DEHYDRATION [None]
  - DISORIENTATION [None]
  - GASTROINTESTINAL HYPOMOTILITY [None]
  - HEART RATE INCREASED [None]
  - KUSSMAUL RESPIRATION [None]
  - LACTIC ACIDOSIS [None]
  - METABOLIC ACIDOSIS [None]
  - PANCREATITIS ACUTE [None]
  - RECTAL ADENOMA [None]
  - RENAL FAILURE ACUTE [None]
